FAERS Safety Report 11344482 (Version 1)
Quarter: 2015Q3

REPORT INFORMATION
  Report Type: Spontaneous
  Country: US (occurrence: None)
  Receive Date: 20150805
  Receipt Date: 20150805
  Transmission Date: 20151125
  Serious: Yes (Other)
  Sender: FDA-Public Use
  Company Number: None

PATIENT
  Age: 37 Year
  Sex: Female
  Weight: 88.45 kg

DRUGS (4)
  1. ESCITALOPRAM [Suspect]
     Active Substance: ESCITALOPRAM OXALATE
     Indication: OBSESSIVE-COMPULSIVE DISORDER
     Dosage: 1 PILL PER DAY
     Dates: start: 20150505, end: 20150511
  2. ESCITALOPRAM [Suspect]
     Active Substance: ESCITALOPRAM OXALATE
     Indication: DEPRESSION
     Dosage: 1 PILL PER DAY
     Dates: start: 20150505, end: 20150511
  3. ESCITALOPRAM [Suspect]
     Active Substance: ESCITALOPRAM OXALATE
     Indication: ANXIETY
     Dosage: 1 PILL PER DAY
     Dates: start: 20150505, end: 20150511
  4. VITAMIN B [Concomitant]
     Active Substance: VITAMIN B

REACTIONS (8)
  - Sedation [None]
  - Decreased activity [None]
  - Anxiety [None]
  - Product substitution issue [None]
  - Fatigue [None]
  - Obsessive-compulsive disorder [None]
  - Disease recurrence [None]
  - Depression [None]

NARRATIVE: CASE EVENT DATE: 20150804
